FAERS Safety Report 14542901 (Version 1)
Quarter: 2018Q1

REPORT INFORMATION
  Report Type: Spontaneous
  Country: SA (occurrence: SA)
  Receive Date: 20180216
  Receipt Date: 20180216
  Transmission Date: 20180509
  Serious: Yes (Other)
  Sender: FDA-Public Use
  Company Number: SA-BAUSCH-BL-2018-003896

PATIENT
  Age: 33 Year
  Sex: Male

DRUGS (5)
  1. METHOTREXATE. [Suspect]
     Active Substance: METHOTREXATE
     Indication: MYCOSIS FUNGOIDES
     Dosage: CYCLICAL
     Dates: start: 201507, end: 2015
  2. PREDNISOLONE. [Suspect]
     Active Substance: PREDNISOLONE
     Indication: MYCOSIS FUNGOIDES
     Dosage: CYCLICAL
     Dates: start: 201507, end: 2015
  3. ETOPOSIDE. [Suspect]
     Active Substance: ETOPOSIDE
     Indication: MYCOSIS FUNGOIDES
     Dosage: CYCLICAL
     Dates: start: 201507, end: 2015
  4. L-ASPARGINASE [Suspect]
     Active Substance: ASPARAGINASE
     Indication: MYCOSIS FUNGOIDES
     Dosage: CYCLICAL
     Dates: start: 201507, end: 2015
  5. IFOSFAMIDE. [Suspect]
     Active Substance: IFOSFAMIDE
     Indication: MYCOSIS FUNGOIDES
     Dosage: CYCLICAL
     Dates: start: 201507, end: 2015

REACTIONS (2)
  - Neutropenia [Unknown]
  - Thrombocytopenia [Unknown]

NARRATIVE: CASE EVENT DATE: 2015
